FAERS Safety Report 21926203 (Version 2)
Quarter: 2023Q2

REPORT INFORMATION
  Report Type: Report from Study
  Country: US (occurrence: US)
  Receive Date: 20230130
  Receipt Date: 20230526
  Transmission Date: 20230721
  Serious: Yes (Other)
  Sender: FDA-Public Use
  Company Number: US-TAKEDA-US202032834

PATIENT
  Age: 74 Year
  Sex: Female

DRUGS (1)
  1. HUMAN IMMUNOGLOBULIN G\HYALURONIDASE RECOMBINANT HUMAN [Suspect]
     Active Substance: HUMAN IMMUNOGLOBULIN G\HYALURONIDASE RECOMBINANT HUMAN
     Indication: Immunodeficiency common variable
     Dosage: UNK UNK, Q3WEEKS
     Route: 065

REACTIONS (9)
  - Bronchiectasis [Unknown]
  - Spinal compression fracture [Unknown]
  - Pneumonia [Unknown]
  - Allergy to immunoglobulin therapy [Unknown]
  - COVID-19 [Recovered/Resolved]
  - Osteoporosis [Unknown]
  - Asthma [Unknown]
  - Body height decreased [Unknown]
  - Infusion site pruritus [Recovering/Resolving]

NARRATIVE: CASE EVENT DATE: 20220101
